FAERS Safety Report 22101365 (Version 1)
Quarter: 2023Q1

REPORT INFORMATION
  Report Type: Spontaneous
  Country: US (occurrence: US)
  Receive Date: 20230316
  Receipt Date: 20230316
  Transmission Date: 20230418
  Serious: No
  Sender: FDA-Public Use
  Company Number: US-GSKCCFUS-Case-01646014_AE-92897

PATIENT
  Sex: Female

DRUGS (2)
  1. FLOVENT HFA [Suspect]
     Active Substance: FLUTICASONE PROPIONATE
     Indication: Product used for unknown indication
     Dosage: 1 PUFF(S), QD, FLOVENT HFA 110MCG
     Dates: start: 20230210
  2. FLOVENT HFA [Suspect]
     Active Substance: FLUTICASONE PROPIONATE
     Dosage: 1 PUFF(S), QD, FLOVENT HFA 110MCG

REACTIONS (6)
  - Psychomotor hyperactivity [Unknown]
  - Feeling jittery [Unknown]
  - Swollen tongue [Unknown]
  - Oropharyngeal pain [Unknown]
  - Candida infection [Unknown]
  - Incorrect dose administered [Unknown]
